FAERS Safety Report 16514397 (Version 3)
Quarter: 2019Q4

REPORT INFORMATION
  Report Type: Report from Study
  Country: US (occurrence: US)
  Receive Date: 20190702
  Receipt Date: 20191004
  Transmission Date: 20200122
  Serious: Yes (Other)
  Sender: FDA-Public Use
  Company Number: US-PFIZER INC-2019105253

PATIENT
  Age: 67 Year
  Sex: Female

DRUGS (1)
  1. XELJANZ XR [Suspect]
     Active Substance: TOFACITINIB CITRATE
     Indication: RHEUMATOID ARTHRITIS
     Dosage: 11 MG, 1X/DAY
     Route: 048
     Dates: start: 201809

REACTIONS (18)
  - Headache [Unknown]
  - Back pain [Unknown]
  - Cough [Not Recovered/Not Resolved]
  - Nasal congestion [Unknown]
  - Vitamin D decreased [Unknown]
  - Joint swelling [Unknown]
  - Peripheral swelling [Recovering/Resolving]
  - Sinusitis [Unknown]
  - Dizziness [Unknown]
  - Gait disturbance [Recovering/Resolving]
  - Nodule [Recovering/Resolving]
  - Muscle spasms [Unknown]
  - Oropharyngeal pain [Unknown]
  - White blood cell count decreased [Unknown]
  - Musculoskeletal stiffness [Recovering/Resolving]
  - Loss of consciousness [Not Recovered/Not Resolved]
  - Pain [Unknown]
  - Fall [Unknown]

NARRATIVE: CASE EVENT DATE: 2019
